FAERS Safety Report 6188041-8 (Version None)
Quarter: 2009Q2

REPORT INFORMATION
  Report Type: 
  Country: None (occurrence: None)
  Receive Date: 20090513
  Receipt Date: 20090508
  Transmission Date: 20091009
  Serious: Yes (Death, Hospitalization, Other)
  Sender: FDA-Public Use
  Company Number: PHHY2009GB08879

PATIENT
  Sex: Male

DRUGS (29)
  1. CLOZARIL [Suspect]
     Indication: SCHIZOPHRENIA
     Dosage: UNK
     Dates: start: 19900426
  2. CLOZARIL [Suspect]
     Dosage: 225MG MANE, 250MG NOCTE
     Dates: start: 20090101
  3. CLOZARIL [Suspect]
     Dosage: 200MG MANE, 275MG NOCTE
     Dates: start: 20090201, end: 20090302
  4. CLOZARIL [Suspect]
     Dosage: UNK
     Dates: start: 20090302
  5. CLOZARIL [Suspect]
     Dosage: 250 MG PM DOSE
     Dates: start: 20090305
  6. CLOZARIL [Suspect]
     Dosage: 100 MG, BID
     Dates: start: 20090306
  7. SALBUTAMOL [Concomitant]
     Indication: CHRONIC OBSTRUCTIVE PULMONARY DISEASE
     Dosage: UNK
     Dates: start: 20080501, end: 20090302
  8. METFORMIN HCL [Concomitant]
     Dosage: 1500 MG PER DAY
     Dates: start: 20090302
  9. FRUSEMIDE [Concomitant]
     Indication: OEDEMA PERIPHERAL
     Dosage: 40 MG
     Dates: start: 20080501
  10. FRUSEMIDE [Concomitant]
     Dosage: 20 MG
     Dates: start: 20080901
  11. FRUSEMIDE [Concomitant]
     Dosage: 80 MG PER DAY
     Dates: start: 20090302
  12. RAMIPRIL [Concomitant]
     Dosage: 10MG/DAY
     Dates: start: 20090302
  13. BEZAFIBRATE [Concomitant]
     Indication: LIPIDS INCREASED
     Dosage: 200  MG TDS
     Route: 048
  14. FERROUS SULFATE TAB [Concomitant]
     Indication: ANAEMIA
     Dosage: 200 MG TDS
     Route: 048
  15. VALPROATE SODIUM [Concomitant]
     Dosage: 100 MG, BID
     Dates: start: 20080515
  16. VALPROATE SODIUM [Concomitant]
     Dosage: 750 MG, BID
  17. VALPROATE SODIUM [Concomitant]
     Dosage: 800 MG, BID
     Dates: start: 20080701
  18. VALPROATE SODIUM [Concomitant]
     Dosage: 500 MG, BID
     Dates: start: 20080717
  19. VALPROATE SODIUM [Concomitant]
     Dosage: 700MG MANE, 700MG PM AND 500MG NOCTE
     Dates: start: 20081008
  20. VALPROATE SODIUM [Concomitant]
     Dosage: 700 MG,TDS
     Dates: start: 20081101, end: 20090302
  21. DIAZEPAM [Concomitant]
     Dosage: 2 MG, BID
  22. DIAZEPAM [Concomitant]
     Dosage: 5 MG, BID
     Dates: start: 20080501
  23. DIAZEPAM [Concomitant]
     Dosage: 15 MG PER DAY
     Dates: start: 20080814
  24. DIAZEPAM [Concomitant]
     Dosage: 10 MG PER DAY
     Dates: start: 20081020
  25. DIAZEPAM [Concomitant]
     Dosage: 15 MG PER DAY
     Dates: start: 20081101
  26. DIAZEPAM [Concomitant]
     Dosage: 10MG NOCTE
     Dates: start: 20081211, end: 20090101
  27. HYDROCORTISONE [Concomitant]
     Indication: ECZEMA
     Dosage: UNK
     Dates: start: 20081211
  28. FLUCLOXACILLIN [Concomitant]
     Indication: INFECTION
     Dosage: 500 MG TDS
     Dates: start: 20090101
  29. OFLEMAZINE [Concomitant]
     Indication: INFECTION
     Dosage: UNK
     Dates: start: 20090101

REACTIONS (38)
  - ABDOMINAL DISTENSION [None]
  - ABDOMINAL PAIN [None]
  - BENCE JONES PROTEIN URINE PRESENT [None]
  - BLISTER [None]
  - BLOOD ALKALINE PHOSPHATASE DECREASED [None]
  - BLOOD PRESSURE INCREASED [None]
  - BODY TEMPERATURE INCREASED [None]
  - BURNS THIRD DEGREE [None]
  - CHRONIC OBSTRUCTIVE PULMONARY DISEASE [None]
  - CONVULSION [None]
  - DRUG LEVEL INCREASED [None]
  - DYSPNOEA [None]
  - ECZEMA [None]
  - HEART RATE INCREASED [None]
  - HIGH DENSITY LIPOPROTEIN DECREASED [None]
  - HYPERHIDROSIS [None]
  - HYPOVENTILATION [None]
  - INFECTION [None]
  - LEFT VENTRICULAR FAILURE [None]
  - LOWER RESPIRATORY TRACT INFECTION [None]
  - MANIA [None]
  - MENTAL IMPAIRMENT [None]
  - MYOCARDIAL INFARCTION [None]
  - NASOPHARYNGITIS [None]
  - OEDEMA PERIPHERAL [None]
  - OXYGEN SATURATION DECREASED [None]
  - PNEUMONIA [None]
  - PRODUCTIVE COUGH [None]
  - QRS AXIS ABNORMAL [None]
  - RESPIRATORY DEPRESSION [None]
  - RESPIRATORY FAILURE [None]
  - SEDATION [None]
  - SEXUAL DYSFUNCTION [None]
  - SLEEP APNOEA SYNDROME [None]
  - SOMNOLENCE [None]
  - TREATMENT FAILURE [None]
  - WEIGHT INCREASED [None]
  - WHEEZING [None]
